FAERS Safety Report 4810945-6 (Version None)
Quarter: 2005Q4

REPORT INFORMATION
  Report Type: 
  Country: None (occurrence: None)
  Receive Date: 20051027
  Receipt Date: 20051018
  Transmission Date: 20060501
  Serious: Yes (Death, Hospitalization)
  Sender: FDA-Public Use
  Company Number: US-ABBOTT-05P-163-0314429-00

PATIENT
  Sex: Male
  Weight: 78.3 kg

DRUGS (1)
  1. HUMIRA 40 MG/ 0.8 ML PRE-FILLED SYRINGE [Suspect]
     Indication: RHEUMATOID ARTHRITIS
     Route: 058
     Dates: start: 20041101

REACTIONS (3)
  - BRAIN MASS [None]
  - GLIOBLASTOMA MULTIFORME [None]
  - NERVOUS SYSTEM DISORDER [None]
